FAERS Safety Report 15034245 (Version 1)
Quarter: 2018Q2

REPORT INFORMATION
  Report Type: Report from Study
  Country: US (occurrence: US)
  Receive Date: 20180620
  Receipt Date: 20180620
  Transmission Date: 20180711
  Serious: Yes (Other)
  Sender: FDA-Public Use
  Company Number: US-CONCORDIA PHARMACEUTICALS INC.-GSH201806-002004

PATIENT
  Age: 15 Year
  Sex: Female

DRUGS (3)
  1. CLOBETASOL [Concomitant]
     Active Substance: CLOBETASOL
  2. HYDROXYCHLOROQUINE [Suspect]
     Active Substance: HYDROXYCHLOROQUINE
     Indication: ALOPECIA UNIVERSALIS
  3. MINOXIDIL. [Concomitant]
     Active Substance: MINOXIDIL

REACTIONS (1)
  - Gastroenteritis viral [Unknown]
